FAERS Safety Report 6002185-2 (Version None)
Quarter: 2008Q4

REPORT INFORMATION
  Report Type: 
  Country: None (occurrence: None)
  Receive Date: 20081215
  Receipt Date: 20081203
  Transmission Date: 20090506
  Serious: Yes (Hospitalization)
  Sender: FDA-Public Use
  Company Number: US-GENENTECH-273553

PATIENT

DRUGS (7)
  1. BEVACIZUMAB [Suspect]
     Indication: DIFFUSE LARGE B-CELL LYMPHOMA
     Dosage: 15 MG/KG, Q3W
     Route: 042
     Dates: start: 20080220
  2. RITUXIMAB [Suspect]
     Indication: DIFFUSE LARGE B-CELL LYMPHOMA
     Dosage: 375 MG/M2, Q3W
     Route: 042
     Dates: start: 20080220
  3. CYCLOPHOSPHAMIDE [Suspect]
     Indication: CHEMOTHERAPY
     Dosage: 750 MG/M2, Q3W
     Route: 042
  4. DOXORUBICIN HCL [Suspect]
     Indication: CHEMOTHERAPY
     Dosage: 50 MG/M2, Q3W
     Route: 042
  5. VINCRISTINE [Suspect]
     Indication: CHEMOTHERAPY
     Dosage: 1.4 MG/M2, Q3W
     Route: 042
  6. PREDNISONE TAB [Suspect]
     Indication: CHEMOTHERAPY
     Dosage: 100 MG, D1-5, Q3W
     Route: 042
  7. LOVENOX [Suspect]

REACTIONS (1)
  - DEEP VEIN THROMBOSIS [None]
